FAERS Safety Report 9339646 (Version 2)
Quarter: 2013Q2

REPORT INFORMATION
  Report Type: Spontaneous
  Country: US (occurrence: US)
  Receive Date: 20130610
  Receipt Date: 20130626
  Transmission Date: 20140414
  Serious: Yes (Other)
  Sender: FDA-Public Use
  Company Number: US-BIOGENIDEC-2013BI050339

PATIENT
  Age: 49 Year
  Sex: Female
  Weight: 63 kg

DRUGS (3)
  1. AVONEX [Suspect]
     Indication: MULTIPLE SCLEROSIS
     Route: 030
     Dates: start: 20110103, end: 2013
  2. AVONEX [Suspect]
     Indication: MULTIPLE SCLEROSIS
     Route: 030
     Dates: start: 2013, end: 2013
  3. AVONEX [Suspect]
     Indication: MULTIPLE SCLEROSIS
     Route: 030
     Dates: start: 2013, end: 201305

REACTIONS (3)
  - Convulsion [Recovered/Resolved]
  - Drug dispensing error [Recovered/Resolved with Sequelae]
  - Influenza like illness [Recovered/Resolved]
